FAERS Safety Report 13988543 (Version 2)
Quarter: 2017Q3

REPORT INFORMATION
  Report Type: Spontaneous
  Country: FR (occurrence: FR)
  Receive Date: 20170919
  Receipt Date: 20170929
  Transmission Date: 20171128
  Serious: Yes (Other)
  Sender: FDA-Public Use
  Company Number: FR-MERCK KGAA-2026885

PATIENT
  Age: 63 Year
  Sex: Female

DRUGS (1)
  1. NOVOTHYROX [Suspect]
     Active Substance: LEVOTHYROXINE SODIUM
     Indication: HYPOTHYROIDISM
     Route: 048
     Dates: start: 201704

REACTIONS (7)
  - Dizziness [Recovered/Resolved with Sequelae]
  - Hypertension [Recovered/Resolved with Sequelae]
  - Blood thyroid stimulating hormone decreased [Recovered/Resolved with Sequelae]
  - Abdominal pain upper [Recovered/Resolved with Sequelae]
  - Fatigue [Recovered/Resolved with Sequelae]
  - Heart rate increased [Recovered/Resolved with Sequelae]
  - Weight increased [Recovered/Resolved with Sequelae]

NARRATIVE: CASE EVENT DATE: 201706
